FAERS Safety Report 8785260 (Version 1)
Quarter: 2012Q4

REPORT INFORMATION
  Report Type: Spontaneous
  Country: NZ (occurrence: None)
  Receive Date: 20120831
  Receipt Date: 20120831
  Transmission Date: 20130627
  Serious: Yes (Hospitalization)
  Sender: FDA-Public Use
  Company Number: 2012080094

PATIENT
  Age: 16 Year
  Sex: Male

DRUGS (5)
  1. MESALAZINE [Suspect]
     Indication: INFLAMMATORY BOWEL DISEASE
  2. MESALAZINE [Suspect]
     Indication: INFLAMMATORY BOWEL DISEASE
  3. AZATHIOPRINE [Suspect]
     Dosage: (100 mg, 1 in 1 D)
  4. IRON [Concomitant]
  5. VITAMIN D (ERGOCALCIFEROL) [Concomitant]

REACTIONS (9)
  - Colitis [None]
  - Ileitis [None]
  - Blood alkaline phosphatase increased [None]
  - Aspartate aminotransferase increased [None]
  - Alanine aminotransferase increased [None]
  - Cholangitis sclerosing [None]
  - Infection [None]
  - Metabolic disorder [None]
  - Pancreatitis [None]
